FAERS Safety Report 26195455 (Version 1)
Quarter: 2025Q4

REPORT INFORMATION
  Report Type: Spontaneous
  Country: US (occurrence: US)
  Receive Date: 20251224
  Receipt Date: 20251224
  Transmission Date: 20260117
  Serious: Yes (Hospitalization, Disabling, Other)
  Sender: PROVEPHARM
  Company Number: US-Provepharm-2191223

PATIENT
  Age: 69 Year
  Sex: Male

DRUGS (1)
  1. PROVAYBLUE [Suspect]
     Active Substance: METHYLENE BLUE

REACTIONS (2)
  - Retinal toxicity [Recovered/Resolved with Sequelae]
  - Wrong product administered [Unknown]
